FAERS Safety Report 13400752 (Version 1)
Quarter: 2017Q2

REPORT INFORMATION
  Report Type: Spontaneous
  Country: IL (occurrence: IL)
  Receive Date: 20170404
  Receipt Date: 20170404
  Transmission Date: 20170830
  Serious: Yes (Death, Hospitalization, Other)
  Sender: FDA-Public Use
  Company Number: PHHY2016IL089556

PATIENT
  Sex: Female

DRUGS (1)
  1. CERTICAN [Suspect]
     Active Substance: EVEROLIMUS
     Indication: LIVER TRANSPLANT
     Dosage: UNK
     Route: 048

REACTIONS (5)
  - Death [Fatal]
  - Ulcer [Unknown]
  - Complications of transplanted liver [Unknown]
  - General physical health deterioration [Unknown]
  - Fungal infection [Unknown]
